FAERS Safety Report 14091009 (Version 3)
Quarter: 2017Q4

REPORT INFORMATION
  Report Type: Report from Study
  Country: US (occurrence: US)
  Receive Date: 20171016
  Receipt Date: 20171024
  Transmission Date: 20180321
  Serious: Yes (Other)
  Sender: FDA-Public Use
  Company Number: US-AMGEN-USASL2017154510

PATIENT
  Age: 54 Year
  Sex: Female

DRUGS (2)
  1. ENBREL [Suspect]
     Active Substance: ETANERCEPT
     Indication: PYODERMA GANGRENOSUM
     Dosage: UNK
     Route: 065
     Dates: start: 2016, end: 2016
  2. ENBREL [Suspect]
     Active Substance: ETANERCEPT
     Dosage: UNK
     Route: 065
     Dates: start: 2017

REACTIONS (11)
  - Hypoaesthesia [Unknown]
  - Intervertebral disc degeneration [Unknown]
  - Arthropathy [Unknown]
  - Off label use [Unknown]
  - Injection site pain [Unknown]
  - Paraesthesia [Unknown]
  - Injection site extravasation [Unknown]
  - Alopecia [Unknown]
  - Unevaluable event [Unknown]
  - Muscle atrophy [Unknown]
  - Arthralgia [Unknown]

NARRATIVE: CASE EVENT DATE: 2016
